FAERS Safety Report 8229729-4 (Version None)
Quarter: 2012Q1

REPORT INFORMATION
  Report Type: 
  Country: None (occurrence: None)
  Receive Date: 20120322
  Receipt Date: 20120319
  Transmission Date: 20120608
  Serious: Yes (Hospitalization)
  Sender: FDA-Public Use
  Company Number: US-MERCK-1203USA02481

PATIENT
  Age: 10 Year
  Sex: Female

DRUGS (7)
  1. SINGULAIR [Suspect]
     Indication: HYPERSENSITIVITY
     Route: 048
     Dates: start: 20111201
  2. SINGULAIR [Suspect]
     Indication: ASTHMA
     Route: 048
     Dates: start: 20111201
  3. ZYRTEC [Concomitant]
     Route: 065
  4. FLOVENT [Concomitant]
     Route: 065
  5. ALBUTEROL [Concomitant]
     Route: 065
  6. PRILOSEC [Concomitant]
     Route: 065
  7. ASTEPRO [Concomitant]
     Route: 065

REACTIONS (2)
  - OVERDOSE [None]
  - HICCUPS [None]
